FAERS Safety Report 9702851 (Version 3)
Quarter: 2014Q2

REPORT INFORMATION
  Report Type: Spontaneous
  Country: US (occurrence: None)
  Receive Date: 20131120
  Receipt Date: 20140429
  Transmission Date: 20141212
  Serious: Yes (Hospitalization)
  Sender: FDA-Public Use
  Company Number: AEGR000206

PATIENT
  Age: 65 Year
  Sex: Female
  Weight: 63.5 kg

DRUGS (17)
  1. JUXTAPID [Suspect]
     Indication: TYPE IIA HYPERLIPIDAEMIA
     Route: 048
     Dates: start: 201310
  2. JUXTAPID [Suspect]
     Indication: TYPE IIA HYPERLIPIDAEMIA
     Route: 048
     Dates: start: 201310
  3. PREDNISONE [Concomitant]
  4. LEXAPRO [Concomitant]
  5. GABAPENTIN [Concomitant]
  6. LISINOPRIL [Concomitant]
  7. METOPROLOL [Concomitant]
  8. ISOSORBIDE [Concomitant]
  9. POTASSIUM CHLORIDE [Concomitant]
  10. LOSARTAN [Concomitant]
  11. ASA [Concomitant]
  12. VITAMIN D3 [Concomitant]
  13. IMDUR (ISOSORBIDE MONONITRATE) [Concomitant]
  14. OMEORAZOLE (OMEPRAZOLE) [Concomitant]
  15. LORAZEPAM (LORAZEPAM) [Concomitant]
  16. VICODIN (HYDROCODONE BITARTRATE, PARACETAMOL) [Concomitant]
  17. NITROGLYCERIN (GLYCERYL TRINITRATE) SPRAY [Concomitant]

REACTIONS (6)
  - Gastrointestinal tube insertion [None]
  - Unevaluable event [None]
  - Myasthenia gravis [None]
  - Acute respiratory failure [None]
  - Dysphagia [None]
  - Asthenia [None]
